FAERS Safety Report 7589159-5 (Version None)
Quarter: 2011Q2

REPORT INFORMATION
  Report Type: 
  Country: None (occurrence: None)
  Receive Date: 20110627
  Receipt Date: 20110617
  Transmission Date: 20111010
  Serious: Yes (Other)
  Sender: FDA-Public Use
  Company Number: 2011SP021226

PATIENT
  Age: 34 Year
  Sex: Male

DRUGS (5)
  1. REBETOL [Suspect]
     Indication: HEPATITIS C
     Dosage: 1000 MG; QD; PO
     Route: 048
     Dates: start: 20110105, end: 20110420
  2. EFFEXOR [Concomitant]
  3. METADONE [Concomitant]
  4. PEGASYS [Suspect]
     Indication: HEPATITIS C
     Dosage: 180 MCG; QW; SC
     Route: 058
     Dates: start: 20110105, end: 20110420
  5. LORAZEPAM [Concomitant]

REACTIONS (3)
  - IMPULSIVE BEHAVIOUR [None]
  - DEPRESSION [None]
  - DYSPHORIA [None]
